FAERS Safety Report 4626405-1 (Version None)
Quarter: 2005Q1

REPORT INFORMATION
  Report Type: 
  Country: None (occurrence: None)
  Receive Date: 20050330
  Receipt Date: 20050324
  Transmission Date: 20050727
  Serious: Yes (Death)
  Sender: FDA-Public Use
  Company Number: 163-20785-04080505

PATIENT
  Age: 67 Year
  Sex: Male

DRUGS (1)
  1. THALOMID [Suspect]
     Indication: CHRONIC LYMPHOCYTIC LEUKAEMIA
     Dosage: 100-150MG, QD, ORAL
     Route: 048
     Dates: start: 20040527, end: 20040701

REACTIONS (2)
  - ACUTE MYELOID LEUKAEMIA [None]
  - SEPSIS [None]
